FAERS Safety Report 23704331 (Version 20)
Quarter: 2025Q1

REPORT INFORMATION
  Report Type: Report from Study
  Country: MX (occurrence: MX)
  Receive Date: 20240404
  Receipt Date: 20250206
  Transmission Date: 20250408
  Serious: No
  Sender: TAKEDA
  Company Number: MX-TAKEDA-2023TUS024764

PATIENT
  Age: 9 Year
  Sex: Male

DRUGS (10)
  1. ICATIBANT [Suspect]
     Active Substance: ICATIBANT ACETATE
     Indication: Hereditary angioedema
  2. ICATIBANT [Suspect]
     Active Substance: ICATIBANT ACETATE
  3. ICATIBANT [Suspect]
     Active Substance: ICATIBANT ACETATE
  4. ICATIBANT [Suspect]
     Active Substance: ICATIBANT ACETATE
  5. ICATIBANT [Suspect]
     Active Substance: ICATIBANT ACETATE
  6. ICATIBANT [Suspect]
     Active Substance: ICATIBANT ACETATE
  7. ICATIBANT [Suspect]
     Active Substance: ICATIBANT ACETATE
  8. ICATIBANT [Suspect]
     Active Substance: ICATIBANT ACETATE
  9. ICATIBANT [Suspect]
     Active Substance: ICATIBANT ACETATE
  10. BERINERT [Concomitant]
     Active Substance: HUMAN C1-ESTERASE INHIBITOR
     Indication: Prophylaxis

REACTIONS (38)
  - Influenza [Unknown]
  - Limb injury [Unknown]
  - Grip strength decreased [Unknown]
  - Pain [Not Recovered/Not Resolved]
  - Abnormal faeces [Unknown]
  - Bite [Not Recovered/Not Resolved]
  - Hyperphagia [Unknown]
  - Allergy to plants [Unknown]
  - Malaise [Unknown]
  - Food allergy [Unknown]
  - Product availability issue [Unknown]
  - Fear [Unknown]
  - Discomfort [Unknown]
  - Insomnia [Unknown]
  - Drug hypersensitivity [Unknown]
  - Rhinitis [Not Recovered/Not Resolved]
  - Head injury [Unknown]
  - Swelling [Unknown]
  - Contusion [Unknown]
  - Injury [Unknown]
  - Arthropod bite [Unknown]
  - Scratch [Unknown]
  - Molluscum contagiosum [Recovering/Resolving]
  - Oedema peripheral [Unknown]
  - Vomiting [Unknown]
  - Abdominal pain upper [Unknown]
  - Constipation [Unknown]
  - Inflammation [Not Recovered/Not Resolved]
  - Neck pain [Unknown]
  - Incorrect route of product administration [Unknown]
  - Rhinitis allergic [Unknown]
  - Abdominal pain [Recovered/Resolved]
  - Multiple allergies [Unknown]
  - Diarrhoea [Unknown]
  - Face oedema [Not Recovered/Not Resolved]
  - Hypersensitivity [Not Recovered/Not Resolved]
  - Urticaria [Not Recovered/Not Resolved]
  - Pruritus [Unknown]

NARRATIVE: CASE EVENT DATE: 20240201
